FAERS Safety Report 8422097-4 (Version None)
Quarter: 2012Q2

REPORT INFORMATION
  Report Type: 
  Country: None (occurrence: None)
  Receive Date: 20120323
  Receipt Date: 20111214
  Transmission Date: 20120825
  Serious: Yes (Other)
  Sender: FDA-Public Use
  Company Number: 163-21880-11121955

PATIENT
  Age: 67 Year
  Sex: Female
  Weight: 63.5036 kg

DRUGS (13)
  1. EVISTA [Concomitant]
  2. OMEPRAZOLE [Concomitant]
  3. METFFORMIN HYDROCHLORIDE [Concomitant]
  4. OXYCODONE HCL [Concomitant]
  5. TRICOR [Concomitant]
  6. HUMULIN N [Concomitant]
  7. LENALIDOMIDE [Suspect]
     Indication: MULTIPLE MYELOMA
     Dosage: 10 MG, DAILY X 14 DAYS, PO
     Route: 048
     Dates: start: 20111117
  8. SERAQUIL (QUETIAPINE FUMARATE) [Concomitant]
  9. VELCADE [Concomitant]
  10. ONDANSETRON [Concomitant]
  11. HUMALOG [Concomitant]
  12. VENLAFAXINE HCL [Concomitant]
  13. GLIPIZIDE [Concomitant]

REACTIONS (3)
  - THROMBOCYTOPENIA [None]
  - DIARRHOEA [None]
  - URINARY TRACT INFECTION [None]
